FAERS Safety Report 5773317-6 (Version None)
Quarter: 2008Q2

REPORT INFORMATION
  Report Type: 
  Country: None (occurrence: None)
  Receive Date: 20080601
  Receipt Date: 20080218
  Transmission Date: 20081010
  Serious: No
  Sender: FDA-Public Use
  Company Number: US200704004890

PATIENT
  Age: 64 Year
  Sex: Female
  Weight: 81.6 kg

DRUGS (10)
  1. BYETTA [Suspect]
     Indication: TYPE 2 DIABETES MELLITUS
     Dosage: 5 UG, 2/D, SUBCUTANEOUS ; 10 UG, 2/D, SUBCUTANEOUS ; 5 UG, 2/D, SUBCUTANEOUS
     Route: 058
     Dates: start: 20070301, end: 20070401
  2. BYETTA [Suspect]
     Indication: TYPE 2 DIABETES MELLITUS
     Dosage: 5 UG, 2/D, SUBCUTANEOUS ; 10 UG, 2/D, SUBCUTANEOUS ; 5 UG, 2/D, SUBCUTANEOUS
     Route: 058
     Dates: start: 20070401
  3. BYETTA [Suspect]
     Indication: TYPE 2 DIABETES MELLITUS
     Dosage: 5 UG, 2/D, SUBCUTANEOUS ; 10 UG, 2/D, SUBCUTANEOUS ; 5 UG, 2/D, SUBCUTANEOUS
     Route: 058
     Dates: start: 20070701
  4. BYETTA [Suspect]
  5. AMARYL [Concomitant]
  6. METFORMIN HCL [Concomitant]
  7. REGLAN [Concomitant]
  8. LEVOXYL [Concomitant]
  9. GLUCOPHAGE /USA/ (METFORMIN HYDROCHLORIDE) [Concomitant]
  10. LANTUS [Concomitant]

REACTIONS (10)
  - BLOOD GLUCOSE DECREASED [None]
  - BLOOD GLUCOSE INCREASED [None]
  - ERUCTATION [None]
  - HEADACHE [None]
  - HICCUPS [None]
  - NAUSEA [None]
  - NERVOUSNESS [None]
  - THYROID DISORDER [None]
  - TREMOR [None]
  - VOMITING [None]
